FAERS Safety Report 6880890-3 (Version None)
Quarter: 2010Q3

REPORT INFORMATION
  Report Type: 
  Country: None (occurrence: None)
  Receive Date: 20100728
  Receipt Date: 20100723
  Transmission Date: 20110219
  Serious: Yes (Death, Hospitalization)
  Sender: FDA-Public Use
  Company Number: CA-ABBOTT-10P-028-0659152-00

PATIENT
  Sex: Female

DRUGS (1)
  1. HUMIRA [Suspect]
     Indication: RHEUMATOID ARTHRITIS
     Route: 058
     Dates: start: 20051209, end: 20100625

REACTIONS (5)
  - APHASIA [None]
  - BLOOD GLUCOSE INCREASED [None]
  - DEATH [None]
  - GLIOBLASTOMA [None]
  - LOSS OF CONSCIOUSNESS [None]
